FAERS Safety Report 12890120 (Version 1)
Quarter: 2016Q4

REPORT INFORMATION
  Report Type: Spontaneous
  Country: US (occurrence: US)
  Receive Date: 20161027
  Receipt Date: 20161027
  Transmission Date: 20170207
  Serious: Yes (Death)
  Sender: FDA-Public Use
  Company Number: US-INSYS THERAPEUTICS, INC-INS201610-000610

PATIENT
  Age: 62 Year
  Sex: Male

DRUGS (5)
  1. SUBSYS [Suspect]
     Active Substance: FENTANYL
     Indication: PAIN IN EXTREMITY
     Dates: start: 2014, end: 2016
  2. SUBSYS [Suspect]
     Active Substance: FENTANYL
     Indication: PHANTOM PAIN
  3. PRILOSEC [Concomitant]
     Active Substance: OMEPRAZOLE MAGNESIUM
  4. DICLOFENAC [Concomitant]
     Active Substance: DICLOFENAC
  5. INSULIN [Concomitant]
     Active Substance: INSULIN NOS

REACTIONS (1)
  - Death [Fatal]

NARRATIVE: CASE EVENT DATE: 20160428
